FAERS Safety Report 6930259-8 (Version None)
Quarter: 2010Q3

REPORT INFORMATION
  Report Type: 
  Country: None (occurrence: None)
  Receive Date: 20100818
  Receipt Date: 20100813
  Transmission Date: 20110219
  Serious: Yes (Other)
  Sender: FDA-Public Use
  Company Number: SE-ELI_LILLY_AND_COMPANY-SE201008003676

PATIENT
  Sex: Female
  Weight: 69.5 kg

DRUGS (4)
  1. SOMATROPIN [Suspect]
     Indication: GROWTH HORMONE DEFICIENCY
     Dosage: 0.6 MG, DAILY (1/D)
     Route: 058
     Dates: start: 19970603
  2. LEVOTHYROXINE SODIUM [Concomitant]
     Indication: THYROID THERAPY
     Dosage: 100 UG, DAILY (1/D)
     Route: 048
     Dates: start: 19970925
  3. HYDROCORTISONE [Concomitant]
     Indication: ADRENAL INSUFFICIENCY
     Dosage: 25 MG, DAILY (1/D)
     Route: 048
     Dates: start: 19950628
  4. PRASTERONE [Concomitant]
     Indication: ADRENAL INSUFFICIENCY
     Dosage: 25 MG, DAILY (1/D)
     Route: 048
     Dates: start: 20000110

REACTIONS (1)
  - BASAL CELL CARCINOMA [None]
